FAERS Safety Report 15481902 (Version 1)
Quarter: 2018Q4

REPORT INFORMATION
  Report Type: Spontaneous
  Country: US (occurrence: US)
  Receive Date: 20181003
  Receipt Date: 20181003
  Transmission Date: 20190205
  Serious: Yes (Other)
  Sender: FDA-Public Use
  Company Number: None

PATIENT
  Age: 58 Year
  Sex: Female

DRUGS (4)
  1. SODIUM CHLORIDE. [Suspect]
     Active Substance: SODIUM CHLORIDE
     Indication: LUNG INFECTION
     Dosage: ?          OTHER FREQUENCY:1 DAILY ON M,W,F;?
     Dates: start: 20180928, end: 20181002
  2. AMIKACIN. [Suspect]
     Active Substance: AMIKACIN
     Indication: MYCOBACTERIAL INFECTION
     Dosage: ?          OTHER FREQUENCY:1 DAILY ON M,W,F;?
     Dates: start: 20180928, end: 20181002
  3. SODIUM CHLORIDE. [Suspect]
     Active Substance: SODIUM CHLORIDE
     Indication: MYCOBACTERIAL INFECTION
     Dosage: ?          OTHER FREQUENCY:1 DAILY ON M,W,F;?
     Dates: start: 20180928, end: 20181002
  4. AMIKACIN. [Suspect]
     Active Substance: AMIKACIN
     Indication: LUNG INFECTION
     Dosage: ?          OTHER FREQUENCY:1 DAILY ON M,W,F;?
     Dates: start: 20180928, end: 20181002

REACTIONS (3)
  - Gingival bleeding [None]
  - Angina bullosa haemorrhagica [None]
  - Vaginal haemorrhage [None]

NARRATIVE: CASE EVENT DATE: 20180930
